FAERS Safety Report 15794761 (Version 1)
Quarter: 2019Q1

REPORT INFORMATION
  Report Type: Spontaneous
  Country: US (occurrence: US)
  Receive Date: 20190107
  Receipt Date: 20190107
  Transmission Date: 20190417
  Serious: Yes (Death)
  Sender: FDA-Public Use
  Company Number: US-BAYER-2019-003888

PATIENT
  Age: 43 Year
  Sex: Male

DRUGS (10)
  1. PHENOBARBITAL. [Suspect]
     Active Substance: PHENOBARBITAL
     Route: 048
  2. GABAPENTIN. [Suspect]
     Active Substance: GABAPENTIN
     Route: 048
  3. DIPHENHYDRAMINE. [Suspect]
     Active Substance: DIPHENHYDRAMINE
     Route: 048
  4. AMPHETAMINE [Suspect]
     Active Substance: AMPHETAMINE
     Route: 048
  5. PARACETAMOL [Suspect]
     Active Substance: ACETAMINOPHEN
     Route: 048
  6. AMLODIPINE [Suspect]
     Active Substance: AMLODIPINE BESYLATE
     Route: 048
  7. PAROXETINE. [Suspect]
     Active Substance: PAROXETINE
     Route: 048
  8. CLONAZEPAM. [Suspect]
     Active Substance: CLONAZEPAM
     Route: 048
  9. CARBAMAZEPINE. [Suspect]
     Active Substance: CARBAMAZEPINE
     Route: 048
  10. OXYCODONE [Suspect]
     Active Substance: OXYCODONE
     Route: 048

REACTIONS (2)
  - Intentional overdose [None]
  - Toxicity to various agents [Fatal]
